FAERS Safety Report 7889328-0 (Version None)
Quarter: 2011Q4

REPORT INFORMATION
  Report Type: 
  Country: None (occurrence: None)
  Receive Date: 20111103
  Receipt Date: 20111026
  Transmission Date: 20120403
  Serious: Yes (Hospitalization)
  Sender: FDA-Public Use
  Company Number: US-B.I. PHARMACEUTICALS,INC./RIDGEFIELD-2011-BP-22924BP

PATIENT
  Sex: Male
  Weight: 128.82 kg

DRUGS (33)
  1. PRADAXA [Suspect]
     Dosage: 150 MG
     Route: 048
     Dates: end: 20111002
  2. LISINOPRIL [Concomitant]
     Indication: HYPERTENSION
     Dosage: 5 MG
  3. SIMVASTATIN [Concomitant]
     Indication: BLOOD CHOLESTEROL INCREASED
     Dosage: 160 MG
  4. ALEVE [Suspect]
     Indication: ARTHRITIS
     Dosage: 660 MG
     Route: 048
  5. COLACE [Concomitant]
     Indication: LAXATIVE SUPPORTIVE CARE
  6. HYDROCODONE BITARTRATE [Concomitant]
     Indication: ARTHRITIS
  7. OXYCODONE HCL [Concomitant]
     Indication: PAIN
  8. GLUCOSAMINE CHONDROITIN [Concomitant]
     Indication: ARTHRITIS
  9. BETAMETHASONE DIPROPIONATE [Concomitant]
  10. LASIX [Concomitant]
     Indication: OEDEMA PERIPHERAL
  11. PRAMOSONE [Concomitant]
  12. CELEBREX [Suspect]
     Indication: ARTHRITIS
     Dosage: 400 MG
     Route: 048
  13. IBUPROFEN (ADVIL) [Suspect]
  14. COLACE [Concomitant]
     Indication: CONSTIPATION
     Dosage: 100 MG
     Route: 048
  15. I-CAP MULTI [Concomitant]
     Indication: EYE DISORDER
  16. PROTOPIC [Concomitant]
  17. HYDROCORTISONE [Concomitant]
  18. CERAVE MOISTURIZING LOTION [Concomitant]
  19. SARNA SKIN LOTION [Concomitant]
  20. WARFARIN SODIUM [Suspect]
     Dosage: 3.5 MG
     Route: 048
     Dates: end: 20111012
  21. HYDROCODONE BITARTRATE [Concomitant]
     Indication: PAIN
  22. METOPROLOL SUCCINATE [Concomitant]
     Indication: HYPERTENSION
     Dosage: 25 MG
  23. POTASSIUM [Concomitant]
     Dosage: 10 MEQ
  24. METOPROLOL SUCCINATE [Concomitant]
     Indication: CARDIAC DISORDER
  25. TYLENOL-500 [Concomitant]
     Dosage: 1300 MG
  26. ALCORTIN [Concomitant]
  27. LASIX [Concomitant]
     Indication: FLUID RETENTION
     Dosage: 120 MG
  28. TERAZOSIN HCL [Concomitant]
     Indication: RENAL DISORDER
  29. VITAMIN D CHOLECALCIFEROL [Concomitant]
     Dosage: 400 U
  30. PRADAXA [Suspect]
     Indication: ATRIAL FIBRILLATION
     Dosage: 300 MG
     Route: 048
     Dates: start: 20110627, end: 20111002
  31. TERAZOSIN HCL [Concomitant]
     Indication: BENIGN PROSTATIC HYPERPLASIA
     Dosage: 2 MG
  32. OXYCODONE HCL [Concomitant]
     Indication: ARTHRITIS
  33. CENTRUM SILVER MULTIVITAMIN [Concomitant]

REACTIONS (7)
  - HAEMATEMESIS [None]
  - GASTROINTESTINAL HAEMORRHAGE [None]
  - INSOMNIA [None]
  - MALLORY-WEISS SYNDROME [None]
  - GASTRITIS EROSIVE [None]
  - ABDOMINAL PAIN UPPER [None]
  - RENAL FAILURE ACUTE [None]
